FAERS Safety Report 22100043 (Version 1)
Quarter: 2023Q1

REPORT INFORMATION
  Report Type: Spontaneous
  Country: US (occurrence: US)
  Receive Date: 20230315
  Receipt Date: 20230315
  Transmission Date: 20230417
  Serious: No
  Sender: FDA-Public Use
  Company Number: US-BRISTOL-MYERS SQUIBB COMPANY-2023-034171

PATIENT
  Age: 83 Year
  Sex: Male
  Weight: 82.3 kg

DRUGS (1)
  1. REVLIMID [Suspect]
     Active Substance: LENALIDOMIDE
     Indication: Plasma cell myeloma
     Dosage: FREQ: 14 DAYS ON, 7 DAYS OFF
     Route: 048
     Dates: start: 20100716, end: 20100920

REACTIONS (1)
  - Off label use [Unknown]
